FAERS Safety Report 4299646-3 (Version None)
Quarter: 2004Q1

REPORT INFORMATION
  Report Type: 
  Country: None (occurrence: None)
  Receive Date: 20040217
  Receipt Date: 20040130
  Transmission Date: 20041129
  Serious: Yes (Death, Other)
  Sender: FDA-Public Use
  Company Number: 2004003175

PATIENT
  Age: 63 Year
  Sex: Male

DRUGS (1)
  1. VFEND [Suspect]
     Indication: FUNGAL PERITONITIS
     Dosage: (BID), ORAL
     Route: 048
     Dates: start: 20040115, end: 20040118

REACTIONS (1)
  - SEPTIC SHOCK [None]
